FAERS Safety Report 6032428-0 (Version None)
Quarter: 2009Q1

REPORT INFORMATION
  Report Type: 
  Country: None (occurrence: None)
  Receive Date: 20090109
  Receipt Date: 20090109
  Transmission Date: 20090719
  Serious: Yes (Hospitalization)
  Sender: FDA-Public Use
  Company Number: US-PFIZER INC-2008083239

PATIENT

DRUGS (1)
  1. GENOTROPIN [Suspect]

REACTIONS (3)
  - BACK PAIN [None]
  - CHEST PAIN [None]
  - LUNG NEOPLASM [None]
